FAERS Safety Report 5297518-9 (Version None)
Quarter: 2007Q2

REPORT INFORMATION
  Report Type: 
  Country: None (occurrence: None)
  Receive Date: 20070411
  Receipt Date: 20070411
  Transmission Date: 20071010
  Serious: Yes (Other)
  Sender: FDA-Public Use
  Company Number: None

PATIENT
  Sex: Male
  Weight: 92.9874 kg

DRUGS (1)
  1. DICLOPHEN SOD TAB 100MG. ER MFG. SANDOZ [Suspect]
     Dosage: 1 PER DAY 1 PER DAY BY MOUTH
     Route: 048
     Dates: start: 20061101, end: 20070201

REACTIONS (3)
  - DRUG INEFFECTIVE [None]
  - PAIN [None]
  - THERAPEUTIC RESPONSE UNEXPECTED WITH DRUG SUBSTITUTION [None]
